APPROVED DRUG PRODUCT: TESTOPEL
Active Ingredient: TESTOSTERONE
Strength: 75MG
Dosage Form/Route: PELLET;IMPLANTATION
Application: A080911 | Product #001
Applicant: ENDO OPERATIONS LTD
Approved: Approved Prior to Jan 1, 1982 | RLD: No | RS: Yes | Type: RX